FAERS Safety Report 14123726 (Version 1)
Quarter: 2017Q4

REPORT INFORMATION
  Report Type: Spontaneous
  Country: US (occurrence: None)
  Receive Date: 20171025
  Receipt Date: 20171025
  Transmission Date: 20180321
  Serious: No
  Sender: FDA-Public Use
  Company Number: None

PATIENT

DRUGS (2)
  1. CODEINE [Suspect]
     Active Substance: CODEINE
     Route: 048
  2. CODEINE [Suspect]
     Active Substance: CODEINE
     Route: 048

REACTIONS (1)
  - Incorrect dose administered [None]
